FAERS Safety Report 4677525-7 (Version None)
Quarter: 2005Q2

REPORT INFORMATION
  Report Type: 
  Country: None (occurrence: None)
  Receive Date: 20050526
  Receipt Date: 20050526
  Transmission Date: 20051028
  Serious: Yes (Life-Threatening)
  Sender: FDA-Public Use
  Company Number: None

PATIENT
  Age: 32 Year
  Sex: Male
  Weight: 126.1 kg

DRUGS (4)
  1. HALOPERIDOL [Suspect]
     Indication: AGGRESSION
     Dosage: 4 MG   Q2-4 HRS  INTRAMUSCU
     Route: 030
     Dates: start: 20050104, end: 20050105
  2. HALOPERIDOL [Suspect]
     Indication: DRUG WITHDRAWAL SYNDROME
     Dosage: 4 MG   Q2-4 HRS  INTRAMUSCU
     Route: 030
     Dates: start: 20050104, end: 20050105
  3. ATIVAN [Concomitant]
  4. NORMAL SALINE [Concomitant]

REACTIONS (1)
  - NEUROLEPTIC MALIGNANT SYNDROME [None]
